FAERS Safety Report 4341375-1 (Version None)
Quarter: 2004Q2

REPORT INFORMATION
  Report Type: 
  Country: None (occurrence: None)
  Receive Date: 20040414
  Receipt Date: 20040405
  Transmission Date: 20050107
  Serious: Yes (Other)
  Sender: FDA-Public Use
  Company Number: 2004024018

PATIENT
  Age: 45 Year
  Sex: Male
  Weight: 83.9154 kg

DRUGS (3)
  1. BEN-GAY ULTRA (CAMPHOR, MENTHOL, METHYL SALICYLATE) [Suspect]
     Indication: MUSCULOSKELETAL DISCOMFORT
     Dosage: UNSPECIFIED AMOUNT
     Dates: start: 20040404, end: 20040404
  2. ZONISAMIDE [Concomitant]
  3. PHENOBARBITAL TAB [Concomitant]

REACTIONS (1)
  - EPILEPSY [None]
